FAERS Safety Report 25745273 (Version 2)
Quarter: 2025Q3

REPORT INFORMATION
  Report Type: Spontaneous
  Country: EU (occurrence: EU)
  Receive Date: 20250901
  Receipt Date: 20250905
  Transmission Date: 20251020
  Serious: Yes (Other)
  Sender: Atnahs Healthcare
  Company Number: None

PATIENT

DRUGS (2)
  1. TORADOL [Suspect]
     Active Substance: KETOROLAC TROMETHAMINE
     Indication: Pain
     Route: 030
     Dates: start: 20250704, end: 20250704
  2. EZETIMIBE\ROSUVASTATIN CALCIUM [Concomitant]
     Active Substance: EZETIMIBE\ROSUVASTATIN CALCIUM
     Indication: Hypercholesterolaemia
     Route: 048

REACTIONS (1)
  - Dyspnoea [Recovered/Resolved]

NARRATIVE: CASE EVENT DATE: 20250704
